FAERS Safety Report 17372114 (Version 1)
Quarter: 2020Q1

REPORT INFORMATION
  Report Type: Spontaneous
  Country: US (occurrence: US)
  Receive Date: 20200205
  Receipt Date: 20200205
  Transmission Date: 20200409
  Serious: Yes (Other)
  Sender: FDA-Public Use
  Company Number: US-MYLANLABS-2020M1012072

PATIENT
  Age: 66 Year
  Sex: Female

DRUGS (27)
  1. METOPROLOL. [Concomitant]
     Active Substance: METOPROLOL
  2. RUXOLITINIB [Suspect]
     Active Substance: RUXOLITINIB
     Indication: POLYCYTHAEMIA VERA
     Dosage: 5 MILLIGRAM, BID
     Route: 048
  3. RUXOLITINIB [Suspect]
     Active Substance: RUXOLITINIB
     Dosage: 5 MILLIGRAM, QD
     Route: 048
  4. RUXOLITINIB [Suspect]
     Active Substance: RUXOLITINIB
     Dosage: 5 MILLIGRAM, QD, QPM 6PM
     Route: 048
  5. METOPROLOL TARTRATE. [Concomitant]
     Active Substance: METOPROLOL TARTRATE
  6. DIPHENOXYLATE [Concomitant]
     Active Substance: DIPHENOXYLATE
  7. RUXOLITINIB [Suspect]
     Active Substance: RUXOLITINIB
     Dosage: 5 MILLIGRAM, QD
     Route: 048
     Dates: start: 201712
  8. RUXOLITINIB [Suspect]
     Active Substance: RUXOLITINIB
     Dosage: 5 MILLIGRAM, QD
     Route: 048
  9. RUXOLITINIB [Suspect]
     Active Substance: RUXOLITINIB
     Dosage: 5 MILLIGRAM, QOD
  10. RUXOLITINIB [Suspect]
     Active Substance: RUXOLITINIB
     Dosage: 5 MILLIGRAM, QD
     Route: 048
     Dates: start: 201709
  11. RUXOLITINIB [Suspect]
     Active Substance: RUXOLITINIB
     Dosage: UNK
  12. CARAFATE [Suspect]
     Active Substance: SUCRALFATE
     Indication: GASTRIC ULCER
     Dosage: UNK, PRN
  13. PANTOPRAZOLE [Suspect]
     Active Substance: PANTOPRAZOLE
     Indication: PRODUCT USED FOR UNKNOWN INDICATION
     Dosage: 40 MILLIGRAM, QD
  14. B COMPLEX                          /00322001/ [Concomitant]
     Active Substance: CALCIUM PANTOTHENATE\CYANOCOBALAMIN\NIACINAMIDE\PYRIDOXINE HYDROCHLORIDE\RIBOFLAVIN\THIAMINE HYDROCHLORIDE
  15. PREDNISONE. [Suspect]
     Active Substance: PREDNISONE
     Indication: PRODUCT USED FOR UNKNOWN INDICATION
     Dosage: UNK
  16. PANTOPRAZOLE [Suspect]
     Active Substance: PANTOPRAZOLE
     Dosage: UNK
  17. MULTIVITAMIN                       /07504101/ [Concomitant]
     Active Substance: VITAMINS
  18. RUXOLITINIB [Suspect]
     Active Substance: RUXOLITINIB
     Dosage: 5 MILLIGRAM, BID
     Route: 048
  19. RUXOLITINIB [Suspect]
     Active Substance: RUXOLITINIB
     Dosage: 5 MILLIGRAM, BID
     Route: 048
     Dates: start: 20171004
  20. RUXOLITINIB [Suspect]
     Active Substance: RUXOLITINIB
     Dosage: 5 MILLIGRAM, QD, QPM
  21. ASPIRIN                            /00002701/ [Suspect]
     Active Substance: ASPIRIN
     Dosage: UNK
     Dates: end: 201812
  22. CYTOTEC [Concomitant]
     Active Substance: MISOPROSTOL
  23. RUXOLITINIB [Suspect]
     Active Substance: RUXOLITINIB
     Indication: MYELOFIBROSIS
     Dosage: 5 MILLIGRAM, BID
     Route: 048
     Dates: start: 20170820
  24. RUXOLITINIB [Suspect]
     Active Substance: RUXOLITINIB
     Dosage: 5 MILLIGRAM, QD
     Route: 048
  25. RUXOLITINIB [Suspect]
     Active Substance: RUXOLITINIB
     Dosage: 5 MILLIGRAM, BID
     Route: 048
  26. ASPIRIN                            /00002701/ [Suspect]
     Active Substance: ASPIRIN
     Indication: PRODUCT USED FOR UNKNOWN INDICATION
     Dosage: 81 MILLIGRAM, QD
     Dates: end: 201802
  27. FIBER [Concomitant]
     Active Substance: PSYLLIUM HUSK

REACTIONS (61)
  - Myelofibrosis [Recovered/Resolved]
  - Gingival bleeding [Unknown]
  - Weight decreased [Recovering/Resolving]
  - Paraesthesia [Unknown]
  - Oral herpes [Unknown]
  - Fatigue [Recovered/Resolved]
  - Haematocrit decreased [Unknown]
  - Hot flush [Unknown]
  - Feeling abnormal [Unknown]
  - Somnolence [Not Recovered/Not Resolved]
  - Bronchitis [Recovering/Resolving]
  - Drug hypersensitivity [Unknown]
  - Haemoglobin decreased [Recovering/Resolving]
  - Gastric ulcer haemorrhage [Unknown]
  - Erythema [Unknown]
  - Decreased activity [Unknown]
  - Diarrhoea [Recovered/Resolved]
  - Red blood cell count decreased [Recovering/Resolving]
  - White blood cell count decreased [Recovering/Resolving]
  - Weight increased [Unknown]
  - Increased tendency to bruise [Unknown]
  - Cataract [Unknown]
  - Hyperhidrosis [Unknown]
  - Dyspepsia [Unknown]
  - Back disorder [Not Recovered/Not Resolved]
  - Influenza like illness [Unknown]
  - Hypersomnia [Unknown]
  - Gastric disorder [Unknown]
  - Sluggishness [Not Recovered/Not Resolved]
  - Platelet count decreased [Recovering/Resolving]
  - Contusion [Recovered/Resolved]
  - Pain in extremity [Unknown]
  - Drug interaction [Unknown]
  - Ocular hyperaemia [Unknown]
  - Chest pain [Unknown]
  - Dyspnoea [Unknown]
  - Splenomegaly [Not Recovered/Not Resolved]
  - Dizziness [Not Recovered/Not Resolved]
  - Night sweats [Recovering/Resolving]
  - Dry skin [Unknown]
  - Drug intolerance [Unknown]
  - Hypoaesthesia [Unknown]
  - Abdominal discomfort [Unknown]
  - Pruritus [Unknown]
  - Hypertension [Unknown]
  - Peptic ulcer [Unknown]
  - Sleep disorder [Unknown]
  - Malaise [Unknown]
  - Pancreatic disorder [Unknown]
  - Abdominal pain [Unknown]
  - Hepatomegaly [Unknown]
  - Sinusitis [Unknown]
  - Increased appetite [Unknown]
  - Liver disorder [Unknown]
  - Gastrointestinal disorder [Recovered/Resolved]
  - Therapeutic response unexpected [Unknown]
  - Product dose omission [Unknown]
  - Abdominal pain upper [Recovered/Resolved]
  - Headache [Recovered/Resolved]
  - Asthenia [Unknown]
  - Cough [Unknown]
